FAERS Safety Report 10260301 (Version 1)
Quarter: 2014Q2

REPORT INFORMATION
  Report Type: Spontaneous
  Country: US (occurrence: US)
  Receive Date: 20140625
  Receipt Date: 20140625
  Transmission Date: 20141212
  Serious: No
  Sender: FDA-Public Use
  Company Number: US-SA-2014SA060092

PATIENT
  Age: 52 Year
  Sex: Female

DRUGS (5)
  1. AUBAGIO [Suspect]
     Indication: MULTIPLE SCLEROSIS
     Route: 048
     Dates: start: 201404
  2. AMBIEN [Concomitant]
  3. GABAPENTIN [Concomitant]
  4. PROZAC [Concomitant]
  5. PERCOCET [Concomitant]
     Dosage: 7.5-325 MG

REACTIONS (2)
  - Alopecia [Unknown]
  - Incorrect dose administered [Unknown]
